FAERS Safety Report 20090415 (Version 1)
Quarter: 2021Q4

REPORT INFORMATION
  Report Type: Report from Study
  Country: US (occurrence: US)
  Receive Date: 20211119
  Receipt Date: 20211119
  Transmission Date: 20220304
  Serious: No
  Sender: FDA-Public Use
  Company Number: US-SUNOVION-2021SUN004358

PATIENT
  Sex: Female

DRUGS (2)
  1. KYNMOBI [Suspect]
     Active Substance: APOMORPHINE HYDROCHLORIDE
     Indication: Parkinson^s disease
     Dosage: 20 MG
     Route: 060
  2. SINEMET [Concomitant]
     Active Substance: CARBIDOPA\LEVODOPA
     Dosage: UNK
     Route: 048

REACTIONS (3)
  - Dysarthria [Unknown]
  - Heart rate increased [Unknown]
  - Blood pressure decreased [Unknown]
